FAERS Safety Report 12581050 (Version 6)
Quarter: 2018Q2

REPORT INFORMATION
  Report Type: Report from Study
  Country: US (occurrence: US)
  Receive Date: 20160721
  Receipt Date: 20180529
  Transmission Date: 20180711
  Serious: Yes (Congenital Anomaly, Other)
  Sender: FDA-Public Use
  Company Number: PHHY2015US157809

PATIENT
  Age: 36 Year
  Sex: Female

DRUGS (1)
  1. GILENYA [Suspect]
     Active Substance: FINGOLIMOD HYDROCHLORIDE
     Indication: MULTIPLE SCLEROSIS
     Dosage: UNK UNK, QD
     Route: 048

REACTIONS (8)
  - Diastasis recti abdominis [Recovered/Resolved]
  - White blood cell count decreased [Recovering/Resolving]
  - Solar lentigo [Recovered/Resolved]
  - Maculopathy [Recovered/Resolved]
  - Eye pruritus [Recovered/Resolved]
  - Congenital cerebrovascular anomaly [Unknown]
  - Selective IgG subclass deficiency [Unknown]
  - Vision blurred [Unknown]

NARRATIVE: CASE EVENT DATE: 20150716
